FAERS Safety Report 13118868 (Version 1)
Quarter: 2017Q1

REPORT INFORMATION
  Report Type: Spontaneous
  Country: US (occurrence: US)
  Receive Date: 20170116
  Receipt Date: 20170116
  Transmission Date: 20170428
  Serious: Yes (Hospitalization)
  Sender: FDA-Public Use
  Company Number: US-SA-2016SA018516

PATIENT
  Age: 45 Year
  Sex: Male
  Weight: 69.1 kg

DRUGS (7)
  1. CLOFARABINE [Suspect]
     Active Substance: CLOFARABINE
     Indication: BONE MARROW CONDITIONING REGIMEN
     Route: 042
     Dates: start: 20151005, end: 20151009
  2. SIROLIMUS. [Concomitant]
     Active Substance: SIROLIMUS
     Route: 048
  3. ACYCLOVIR. [Concomitant]
     Active Substance: ACYCLOVIR
     Route: 042
  4. CLOFARABINE [Suspect]
     Active Substance: CLOFARABINE
     Indication: MYELODYSPLASTIC SYNDROME
     Route: 042
     Dates: start: 20151005, end: 20151009
  5. MELPHALAN [Suspect]
     Active Substance: MELPHALAN
     Route: 042
     Dates: start: 20151010, end: 20151010
  6. URSODIOL. [Concomitant]
     Active Substance: URSODIOL
     Route: 048
  7. TACROLIMUS. [Concomitant]
     Active Substance: TACROLIMUS
     Route: 042

REACTIONS (10)
  - Pyrexia [Recovered/Resolved]
  - Neutropenia [Unknown]
  - Computerised tomogram abnormal [Unknown]
  - Heart rate increased [Recovered/Resolved]
  - Groin pain [Unknown]
  - Anaemia [Unknown]
  - Septic shock [Recovered/Resolved]
  - Blood pressure systolic decreased [Recovered/Resolved]
  - Fatigue [Recovered/Resolved]
  - Pancytopenia [Unknown]

NARRATIVE: CASE EVENT DATE: 2015
